FAERS Safety Report 11754742 (Version 1)
Quarter: 2015Q4

REPORT INFORMATION
  Report Type: Spontaneous
  Country: US (occurrence: US)
  Receive Date: 20151119
  Receipt Date: 20151119
  Transmission Date: 20160304
  Serious: No
  Sender: FDA-Public Use
  Company Number: US-HERITAGE PHARMACEUTICALS-2015HTG00058

PATIENT
  Age: 34 Year
  Sex: Female
  Weight: 63.49 kg

DRUGS (1)
  1. TETRACYCLINE HYDROCHLORIDE. [Suspect]
     Active Substance: TETRACYCLINE HYDROCHLORIDE
     Indication: ANTIBIOTIC THERAPY
     Dosage: 6 CAPSULES, 1X/DAY
     Route: 048
     Dates: start: 2013

REACTIONS (2)
  - Dizziness [Unknown]
  - Fatigue [Unknown]

NARRATIVE: CASE EVENT DATE: 20150204
